FAERS Safety Report 10067401 (Version 2)
Quarter: 2014Q3

REPORT INFORMATION
  Report Type: Spontaneous
  Country: US (occurrence: None)
  Receive Date: 20140407
  Receipt Date: 20140714
  Transmission Date: 20150326
  Serious: Yes (Hospitalization)
  Sender: FDA-Public Use
  Company Number: 2014-US-003823

PATIENT
  Age: 43 Year
  Sex: Female

DRUGS (2)
  1. XYREM [Suspect]
     Active Substance: SODIUM OXYBATE
     Indication: NARCOLEPSY
     Route: 048
     Dates: start: 201312, end: 201401
  2. XYREM [Suspect]
     Active Substance: SODIUM OXYBATE
     Indication: CATAPLEXY
     Route: 048
     Dates: start: 201312, end: 201401

REACTIONS (7)
  - Pyrexia [None]
  - Urethral stenosis [None]
  - Pollakiuria [None]
  - Condition aggravated [None]
  - Weight increased [None]
  - Paraesthesia [None]
  - Delayed sleep phase [None]

NARRATIVE: CASE EVENT DATE: 20140206
